FAERS Safety Report 12658334 (Version 1)
Quarter: 2016Q3

REPORT INFORMATION
  Report Type: Spontaneous
  Country: US (occurrence: US)
  Receive Date: 20160817
  Receipt Date: 20160817
  Transmission Date: 20161109
  Serious: No
  Sender: FDA-Public Use
  Company Number: US-BEH-2016072180

PATIENT
  Sex: Male
  Weight: 90.7 kg

DRUGS (31)
  1. ZOLOFT [Concomitant]
     Active Substance: SERTRALINE HYDROCHLORIDE
  2. VITAMIN B1 [Concomitant]
     Active Substance: THIAMINE HYDROCHLORIDE
  3. LIDOCAINE/PRILOCAINE [Concomitant]
     Active Substance: LIDOCAINE\PRILOCAINE
  4. PROTONIX [Concomitant]
     Active Substance: PANTOPRAZOLE SODIUM
  5. NASAL SPRAY II [Concomitant]
  6. ALFUZOSIN [Concomitant]
     Active Substance: ALFUZOSIN
  7. COENZYME Q10 [Concomitant]
     Active Substance: UBIDECARENONE
  8. BROMELAIN [Concomitant]
     Active Substance: BROMELAINS
  9. EPIPEN [Concomitant]
     Active Substance: EPINEPHRINE
  10. METOPROLOL. [Concomitant]
     Active Substance: METOPROLOL
  11. ASPIRIN. [Concomitant]
     Active Substance: ASPIRIN
  12. XOPENEX [Concomitant]
     Active Substance: LEVALBUTEROL HYDROCHLORIDE
  13. HIZENTRA [Suspect]
     Active Substance: HUMAN IMMUNOGLOBULIN G
     Indication: IMMUNODEFICIENCY COMMON VARIABLE
     Dosage: 16 G, QOW
     Route: 058
     Dates: start: 20130501
  14. ACETAMINOPHEN. [Concomitant]
     Active Substance: ACETAMINOPHEN
  15. XARELTO [Concomitant]
     Active Substance: RIVAROXABAN
  16. LASIX [Concomitant]
     Active Substance: FUROSEMIDE
  17. SYNTHROID [Concomitant]
     Active Substance: LEVOTHYROXINE SODIUM
  18. PROSCAR [Concomitant]
     Active Substance: FINASTERIDE
  19. SINGULAIR [Concomitant]
     Active Substance: MONTELUKAST SODIUM
  20. POTASSIUM [Concomitant]
     Active Substance: POTASSIUM
  21. VITAMIN D3 [Concomitant]
     Active Substance: CHOLECALCIFEROL
  22. TURMERIC                           /01079602/ [Concomitant]
     Active Substance: TURMERIC
  23. LUTEIN                             /01638501/ [Concomitant]
     Active Substance: LUTEIN
  24. VITAMIN 15 [Concomitant]
  25. COUMADIN [Concomitant]
     Active Substance: WARFARIN SODIUM
  26. ASTEPRO [Concomitant]
     Active Substance: AZELASTINE HYDROCHLORIDE
  27. CRESTOR [Concomitant]
     Active Substance: ROSUVASTATIN CALCIUM
  28. DIPHENHYDRAMINE. [Concomitant]
     Active Substance: DIPHENHYDRAMINE
  29. VICTOZA [Concomitant]
     Active Substance: LIRAGLUTIDE
  30. ATROVENT [Concomitant]
     Active Substance: IPRATROPIUM BROMIDE
  31. PLAVIX [Concomitant]
     Active Substance: CLOPIDOGREL BISULFATE

REACTIONS (1)
  - Administration site extravasation [Unknown]
